FAERS Safety Report 9788963 (Version 1)
Quarter: 2013Q4

REPORT INFORMATION
  Report Type: Spontaneous
  Country: US (occurrence: US)
  Receive Date: 20131230
  Receipt Date: 20131230
  Transmission Date: 20140711
  Serious: Yes (Hospitalization, Other)
  Sender: FDA-Public Use
  Company Number: US-TEVA-453476USA

PATIENT
  Age: 56 Year
  Sex: Female

DRUGS (11)
  1. WARFARIN [Suspect]
     Indication: THROMBOSIS PROPHYLAXIS
     Dosage: 5MG DAILY FOR 3 DAYS, THEN DECREASED TO 2.5MG DAILY
     Route: 050
  2. WARFARIN [Interacting]
     Indication: THROMBOSIS PROPHYLAXIS
     Dosage: 2.5MG DAILY, THEN INCREASED TO 3MG DAILY
     Route: 050
  3. WARFARIN [Interacting]
     Indication: THROMBOSIS PROPHYLAXIS
     Dosage: 3MG DAILY
     Route: 050
  4. BISMUTH SALICYLATE [Interacting]
     Indication: DIARRHOEA
     Route: 065
  5. ENOXAPARIN SODIUM [Concomitant]
     Indication: THROMBOSIS PROPHYLAXIS
     Route: 058
  6. VITAMIN K [Concomitant]
     Dosage: RANGED FROM 30-70MCG/DAY
     Route: 050
  7. LOPERAMIDE [Concomitant]
     Indication: DIARRHOEA
     Route: 065
  8. DIPHENOXYLATE, ATROPINE [Concomitant]
     Indication: DIARRHOEA
     Dosage: DIPHENOXYLATE/ATROPINE 5MG/0.05MG EVERY 6H
     Route: 065
  9. VITAMIN D [Concomitant]
     Dosage: 714.2857 IU (INTERNATIONAL UNIT) DAILY;
     Route: 065
  10. PREDNISONE [Concomitant]
     Dosage: 10 MILLIGRAM DAILY;
     Route: 065
  11. SALBUTAMOL, IPRATROPIUM BROMIDE [Concomitant]
     Dosage: EVERY 4 HOURS
     Route: 055

REACTIONS (3)
  - Post procedural haemorrhage [Recovering/Resolving]
  - Coagulation time prolonged [Recovered/Resolved]
  - Drug interaction [Recovered/Resolved]
